FAERS Safety Report 23268030 (Version 2)
Quarter: 2024Q1

REPORT INFORMATION
  Report Type: Spontaneous
  Country: CO (occurrence: CO)
  Receive Date: 20231206
  Receipt Date: 20240123
  Transmission Date: 20240410
  Serious: Yes (Other)
  Sender: FDA-Public Use
  Company Number: CO-ELI_LILLY_AND_COMPANY-CO202312001547

PATIENT
  Sex: Female

DRUGS (3)
  1. FORTEO [Suspect]
     Active Substance: TERIPARATIDE
     Indication: Osteoporosis
     Dosage: 20 UG, DAILY
     Route: 058
     Dates: start: 2020, end: 2022
  2. FORTEO [Suspect]
     Active Substance: TERIPARATIDE
     Dosage: 20 UG, DAILY
     Route: 058
     Dates: start: 20231201, end: 20240115
  3. DENOSUMAB [Suspect]
     Active Substance: DENOSUMAB
     Indication: Product used for unknown indication
     Dosage: UNK UNK, UNKNOWN
     Route: 065

REACTIONS (10)
  - Osteomyelitis [Not Recovered/Not Resolved]
  - Mouth cyst [Not Recovered/Not Resolved]
  - Vitamin D increased [Not Recovered/Not Resolved]
  - Malaise [Not Recovered/Not Resolved]
  - Discomfort [Not Recovered/Not Resolved]
  - Headache [Not Recovered/Not Resolved]
  - Pain [Not Recovered/Not Resolved]
  - Asthenia [Not Recovered/Not Resolved]
  - Incorrect product administration duration [Unknown]
  - Illness [Unknown]
